FAERS Safety Report 22206965 (Version 1)
Quarter: 2023Q2

REPORT INFORMATION
  Report Type: Spontaneous
  Country: US (occurrence: US)
  Receive Date: 20230413
  Receipt Date: 20230413
  Transmission Date: 20230721
  Serious: Yes (Death, Other)
  Sender: FDA-Public Use
  Company Number: US-STRIDES ARCOLAB LIMITED-2023SP004965

PATIENT

DRUGS (2)
  1. RANITIDINE [Suspect]
     Active Substance: RANITIDINE
     Indication: Product used for unknown indication
     Dosage: UNK (RANITIDINE, OVER THE COUNTER)
     Route: 065
     Dates: start: 1997, end: 2019
  2. RANITIDINE [Suspect]
     Active Substance: RANITIDINE
     Dosage: UNK (ZANTAC, OVER THE COUNTER)
     Route: 065
     Dates: start: 1997, end: 2019

REACTIONS (4)
  - Death [Fatal]
  - Oesophageal cancer metastatic [Unknown]
  - Hepatic cancer metastatic [Unknown]
  - Pancreatic carcinoma [Unknown]

NARRATIVE: CASE EVENT DATE: 20211101
